FAERS Safety Report 21351688 (Version 2)
Quarter: 2022Q4

REPORT INFORMATION
  Report Type: Report from Study
  Country: CA (occurrence: CA)
  Receive Date: 20220919
  Receipt Date: 20221019
  Transmission Date: 20230112
  Serious: Yes (Other)
  Sender: FDA-Public Use
  Company Number: CA-BRISTOL-MYERS SQUIBB COMPANY-2022-064603

PATIENT
  Age: 67 Year
  Sex: Male
  Weight: 74.1 kg

DRUGS (1)
  1. OPDIVO [Suspect]
     Active Substance: NIVOLUMAB
     Indication: Oesophageal adenocarcinoma
     Dosage: B. NO: 1863291 : EXP DATE: 24-SEP-2024 AND ?B. NO: ACD3324: EXP. DATE: 01-AUG-2024
     Route: 042
     Dates: start: 20220609, end: 20220915

REACTIONS (11)
  - Oesophageal disorder [Recovering/Resolving]
  - Depression [Unknown]
  - Nausea [Unknown]
  - Increased appetite [Unknown]
  - Dyspnoea [Recovered/Resolved]
  - Infusion site pain [Recovered/Resolved]
  - Abdominal discomfort [Recovered/Resolved]
  - Infusion site swelling [Recovered/Resolved]
  - Pain [Unknown]
  - Decreased appetite [Unknown]
  - Intentional product use issue [Unknown]

NARRATIVE: CASE EVENT DATE: 20220101
